FAERS Safety Report 7323793-2 (Version None)
Quarter: 2011Q1

REPORT INFORMATION
  Report Type: 
  Country: None (occurrence: None)
  Receive Date: 20110301
  Receipt Date: 20110221
  Transmission Date: 20110831
  Serious: Yes (Death, Hospitalization, Congenital Anomaly)
  Sender: FDA-Public Use
  Company Number: A0690849A

PATIENT
  Sex: Male
  Weight: 3.8 kg

DRUGS (5)
  1. PRENATAL VITAMINS [Concomitant]
     Route: 064
  2. PAXIL [Suspect]
     Indication: DEPRESSION
     Dosage: 20MG PER DAY
     Route: 064
     Dates: start: 20010601, end: 20031201
  3. REGLAN [Concomitant]
     Route: 064
     Dates: start: 20031201, end: 20040901
  4. ACETAMINOPHEN [Concomitant]
     Route: 064
     Dates: start: 20031201, end: 20040901
  5. PAROXETINE HYDROCHLORIDE [Suspect]
     Indication: DEPRESSION
     Dosage: 20MG PER DAY
     Route: 064
     Dates: start: 20030101

REACTIONS (10)
  - METABOLIC ACIDOSIS [None]
  - PERICARDIAL EFFUSION [None]
  - OBSTRUCTIVE AIRWAYS DISORDER [None]
  - DRUG EXPOSURE DURING PREGNANCY [None]
  - ATRIAL SEPTAL DEFECT [None]
  - HYPOPLASTIC LEFT HEART SYNDROME [None]
  - HYPOXIA [None]
  - PATENT DUCTUS ARTERIOSUS [None]
  - CONGENITAL AORTIC ATRESIA [None]
  - MITRAL VALVE STENOSIS [None]
